APPROVED DRUG PRODUCT: CONJUPRI
Active Ingredient: LEVAMLODIPINE MALEATE
Strength: EQ 1.25MG BASE
Dosage Form/Route: TABLET;ORAL
Application: N212895 | Product #001
Applicant: CSPC OUYI PHARMACEUTICAL CO LTD
Approved: Dec 19, 2019 | RLD: Yes | RS: No | Type: DISCN